FAERS Safety Report 18279211 (Version 1)
Quarter: 2020Q3

REPORT INFORMATION
  Report Type: Spontaneous
  Country: CZ (occurrence: CZ)
  Receive Date: 20200917
  Receipt Date: 20200917
  Transmission Date: 20201103
  Serious: Yes (Hospitalization, Other)
  Sender: FDA-Public Use
  Company Number: NVSC2020CZ221252

PATIENT
  Age: 75 Year
  Sex: Male

DRUGS (7)
  1. SIMVASTATIN. [Suspect]
     Active Substance: SIMVASTATIN
     Indication: HYPERLIPIDAEMIA
     Dosage: 40 MG, QD
     Route: 065
  2. BISOPROLOL [Concomitant]
     Active Substance: BISOPROLOL
     Indication: HYPERTENSION
     Dosage: 10 MG, QD
     Route: 065
  3. PREDNISONE. [Suspect]
     Active Substance: PREDNISONE
     Indication: IMMUNE-MEDIATED MYOSITIS
     Dosage: 40 MG, QD
     Route: 048
  4. TELMISARTAN AND AMLODIPINE [Suspect]
     Active Substance: AMLODIPINE BESYLATE\TELMISARTAN
     Indication: HYPERTENSION
     Dosage: 80/10 MG
     Route: 065
  5. METHOTREXATE. [Suspect]
     Active Substance: METHOTREXATE
     Indication: IMMUNE-MEDIATED MYOSITIS
     Dosage: 10 MG, QW
     Route: 065
  6. METFORMIN [Concomitant]
     Active Substance: METFORMIN HYDROCHLORIDE
     Indication: TYPE 2 DIABETES MELLITUS
     Dosage: 1000 MG, QD
     Route: 065
  7. INSULIN GLARGINE [Concomitant]
     Active Substance: INSULIN GLARGINE
     Indication: TYPE 2 DIABETES MELLITUS
     Dosage: 12 IU, QD
     Route: 058

REACTIONS (6)
  - Gait inability [Recovered/Resolved with Sequelae]
  - Immune-mediated myositis [Recovered/Resolved]
  - Muscular weakness [Recovered/Resolved with Sequelae]
  - Pain in extremity [Recovered/Resolved with Sequelae]
  - Drug ineffective for unapproved indication [Unknown]
  - Peripheral swelling [Recovered/Resolved with Sequelae]

NARRATIVE: CASE EVENT DATE: 201904
